FAERS Safety Report 14967118 (Version 1)
Quarter: 2018Q2

REPORT INFORMATION
  Report Type: Spontaneous
  Country: RU (occurrence: RU)
  Receive Date: 20180604
  Receipt Date: 20180604
  Transmission Date: 20180711
  Serious: Yes (Life-Threatening, Hospitalization, Other)
  Sender: FDA-Public Use
  Company Number: RU-CHEPLA-C20170434_A

PATIENT
  Age: 3 Year
  Sex: Female
  Weight: 13 kg

DRUGS (11)
  1. CYTOSAR [Suspect]
     Active Substance: CYTARABINE
     Indication: CHEMOTHERAPY
     Dates: start: 20160505
  2. VESANOID [Suspect]
     Active Substance: TRETINOIN
     Indication: CHEMOTHERAPY
     Route: 048
     Dates: start: 20160505, end: 20170310
  3. ONKOTRONE [Suspect]
     Active Substance: MITOXANTRONE HYDROCHLORIDE
     Indication: CHEMOTHERAPY
     Dates: start: 20170512
  4. CEPHTRIAXONE [Suspect]
     Active Substance: CEFTRIAXONE
     Indication: FEBRILE NEUTROPENIA
     Dates: start: 20170508, end: 20170517
  5. ACICLOVIR [Concomitant]
     Active Substance: ACYCLOVIR
     Indication: STOMATITIS
     Dates: start: 20170511, end: 20170530
  6. CYTOSAR [Suspect]
     Active Substance: CYTARABINE
     Indication: CHEMOTHERAPY
     Dates: start: 20160721, end: 20160724
  7. METRONIDAZOLE. [Suspect]
     Active Substance: METRONIDAZOLE
     Indication: FEBRILE NEUTROPENIA
     Dates: start: 20170511, end: 20170530
  8. DAUNORUBICIN LENS [Suspect]
     Active Substance: DAUNORUBICIN HYDROCHLORIDE
     Indication: CHEMOTHERAPY
     Dates: start: 20160505, end: 20160723
  9. MERKAPTOPURINE [Suspect]
     Active Substance: MERCAPTOPURINE
     Indication: CHEMOTHERAPY
     Dates: start: 20160820, end: 20170505
  10. METHOTREXATE. [Suspect]
     Active Substance: METHOTREXATE
     Indication: CHEMOTHERAPY
     Dates: start: 20160820, end: 20170505
  11. FLUCONAZOLE. [Concomitant]
     Active Substance: FLUCONAZOLE
     Indication: MUCOSAL INFLAMMATION
     Dates: start: 20170511, end: 20170517

REACTIONS (7)
  - Acute leukaemia [Unknown]
  - Ischaemic cerebral infarction [None]
  - Lacunar infarction [None]
  - Hemiparesis [Unknown]
  - Cerebral haemorrhage [Unknown]
  - Acute promyelocytic leukaemia [None]
  - Leukaemia recurrent [None]

NARRATIVE: CASE EVENT DATE: 20170513
